FAERS Safety Report 19007935 (Version 1)
Quarter: 2021Q1

REPORT INFORMATION
  Report Type: Other
  Country: GB (occurrence: GB)
  Receive Date: 20210315
  Receipt Date: 20210315
  Transmission Date: 20210420
  Serious: Yes (Other)
  Sender: FDA-Public Use
  Company Number: GB-SAPTALIS PHARMACEUTICALS,LLC-000055

PATIENT
  Age: 66 Year
  Sex: Female

DRUGS (3)
  1. BUPIVACAINE. [Concomitant]
     Active Substance: BUPIVACAINE
     Indication: OSTEOARTHRITIS
     Dosage: 6ML OF 0.25% BUPIVACAINE
     Route: 014
  2. TRIAMCINOLONE [Suspect]
     Active Substance: TRIAMCINOLONE
     Indication: OSTEOARTHRITIS
     Dosage: INTRA?ARTICULAR INJECTION OF 40 MG
     Route: 014
  3. LIDOCAINE. [Concomitant]
     Active Substance: LIDOCAINE
     Indication: PRODUCT USED FOR UNKNOWN INDICATION
     Dosage: 5 ML OF 1% LIDOCAINE

REACTIONS (2)
  - Arthritis fungal [Unknown]
  - Pain [Unknown]
